FAERS Safety Report 10171864 (Version 1)
Quarter: 2014Q2

REPORT INFORMATION
  Report Type: Spontaneous
  Country: US (occurrence: None)
  Receive Date: 20140428
  Receipt Date: 20140428
  Transmission Date: 20141212
  Serious: Yes (Disabling)
  Sender: FDA-Public Use
  Company Number: 2013GMK007313

PATIENT
  Age: 50 Year
  Sex: Male

DRUGS (5)
  1. ROPINIROLE [Suspect]
     Indication: PARKINSON^S DISEASE
     Dosage: 14 MG, OD, ORAL
     Route: 048
     Dates: start: 2005, end: 201310
  2. DOMPERIDONE (DOMPERIDONE) [Concomitant]
  3. RAMIPRIL (RAMIPRIL) [Concomitant]
  4. RASAGILINE (RASAGILINE) [Concomitant]
  5. SINEMET (CARBIDOPA, LEVODOPA) [Concomitant]

REACTIONS (3)
  - Obsessive-compulsive personality disorder [None]
  - Hypersexuality [None]
  - Mental disorder [None]
